FAERS Safety Report 8405872-1 (Version None)
Quarter: 2012Q1

REPORT INFORMATION
  Report Type: 
  Country: None (occurrence: None)
  Receive Date: 20120323
  Receipt Date: 20110922
  Transmission Date: 20120608
  Serious: Yes (Other)
  Sender: FDA-Public Use
  Company Number: 163-21880-10091439

PATIENT
  Age: 54 Year
  Sex: Female

DRUGS (5)
  1. REVLIMID [Suspect]
     Dosage: 25 MG, 1 IN 1 D, PO, 5 MG, 1 IN 1 D, PO, 25 MG, 1 IN 1 D, PO, 10 MG, 1 IN 1 D, PO, 20 MG, D1-14, PO
     Route: 048
     Dates: start: 20061101
  2. REVLIMID [Suspect]
     Dosage: 25 MG, 1 IN 1 D, PO, 5 MG, 1 IN 1 D, PO, 25 MG, 1 IN 1 D, PO, 10 MG, 1 IN 1 D, PO, 20 MG, D1-14, PO
     Route: 048
     Dates: start: 20070501
  3. REVLIMID [Suspect]
     Dosage: 25 MG, 1 IN 1 D, PO, 5 MG, 1 IN 1 D, PO, 25 MG, 1 IN 1 D, PO, 10 MG, 1 IN 1 D, PO, 20 MG, D1-14, PO
     Route: 048
     Dates: start: 20070601
  4. REVLIMID [Suspect]
     Dosage: 25 MG, 1 IN 1 D, PO, 5 MG, 1 IN 1 D, PO, 25 MG, 1 IN 1 D, PO, 10 MG, 1 IN 1 D, PO, 20 MG, D1-14, PO
     Route: 048
     Dates: start: 20100201
  5. REVLIMID [Suspect]
     Dosage: 25 MG, 1 IN 1 D, PO, 5 MG, 1 IN 1 D, PO, 25 MG, 1 IN 1 D, PO, 10 MG, 1 IN 1 D, PO, 20 MG, D1-14, PO
     Route: 048
     Dates: start: 20100301, end: 20100430

REACTIONS (2)
  - MULTIPLE MYELOMA [None]
  - NEUTROPENIA [None]
